FAERS Safety Report 12645231 (Version 2)
Quarter: 2016Q3

REPORT INFORMATION
  Report Type: Spontaneous
  Country: US (occurrence: US)
  Receive Date: 20160811
  Receipt Date: 20160816
  Transmission Date: 20161109
  Serious: Yes (Hospitalization, Disabling, Other)
  Sender: FDA-Public Use
  Company Number: US-CELGENEUS-USA-2015054905

PATIENT
  Age: 55 Year
  Sex: Female
  Weight: 76.5 kg

DRUGS (30)
  1. MAXZIDE [Concomitant]
     Active Substance: HYDROCHLOROTHIAZIDE\TRIAMTERENE
     Indication: PRODUCT USED FOR UNKNOWN INDICATION
     Route: 065
     Dates: start: 20100920
  2. ALBUTEROL. [Concomitant]
     Active Substance: ALBUTEROL
     Route: 065
     Dates: start: 20150519, end: 20150519
  3. ONDANSETRON [Concomitant]
     Active Substance: ONDANSETRON
     Indication: PROPHYLAXIS
     Route: 065
     Dates: start: 20140412
  4. HYDRALAZINE [Concomitant]
     Active Substance: HYDRALAZINE HYDROCHLORIDE
     Indication: PRODUCT USED FOR UNKNOWN INDICATION
     Route: 065
     Dates: start: 20141020
  5. VITAMIN D3 [Concomitant]
     Active Substance: CHOLECALCIFEROL
     Indication: PROPHYLAXIS
     Route: 065
     Dates: start: 201505
  6. DALTEPARIN [Concomitant]
     Active Substance: DALTEPARIN
     Indication: PROPHYLAXIS
     Route: 065
     Dates: start: 20150519, end: 20150519
  7. LIDOCAINE. [Concomitant]
     Active Substance: LIDOCAINE
     Indication: PROPHYLAXIS
     Route: 065
     Dates: start: 20150511, end: 20150511
  8. AMBIEN [Concomitant]
     Active Substance: ZOLPIDEM TARTRATE
     Indication: PRODUCT USED FOR UNKNOWN INDICATION
     Route: 065
     Dates: start: 201501
  9. REVLIMID [Suspect]
     Active Substance: LENALIDOMIDE
     Dosage: 5, 10, 15 OR 25 MG
     Route: 048
     Dates: start: 20150519
  10. MULTIVITAMIN [Concomitant]
     Active Substance: VITAMINS
     Indication: PROPHYLAXIS
     Route: 065
     Dates: start: 20100920
  11. OXYCODONE [Concomitant]
     Active Substance: OXYCODONE
     Indication: PRODUCT USED FOR UNKNOWN INDICATION
     Route: 065
     Dates: start: 20100920
  12. FLUTICASONE [Concomitant]
     Active Substance: FLUTICASONE\FLUTICASONE PROPIONATE
     Indication: PRODUCT USED FOR UNKNOWN INDICATION
     Route: 065
     Dates: start: 20150520
  13. CARBOXYMETHYLCELLULOSE SODIUM. [Concomitant]
     Active Substance: CARBOXYMETHYLCELLULOSE SODIUM
     Indication: PRODUCT USED FOR UNKNOWN INDICATION
     Route: 047
     Dates: start: 201505
  14. METFORMIN [Concomitant]
     Active Substance: METFORMIN HYDROCHLORIDE
     Indication: PRODUCT USED FOR UNKNOWN INDICATION
     Route: 065
     Dates: start: 201410
  15. REVLIMID [Suspect]
     Active Substance: LENALIDOMIDE
     Indication: PLASMA CELL MYELOMA RECURRENT
     Route: 048
  16. DEXAMETHASONE. [Suspect]
     Active Substance: DEXAMETHASONE
     Indication: PLASMA CELL MYELOMA RECURRENT
     Route: 041
     Dates: start: 20150519, end: 20150519
  17. SAR650984 [Suspect]
     Active Substance: ISATUXIMAB
     Indication: PLASMA CELL MYELOMA RECURRENT
     Route: 041
     Dates: start: 20150519, end: 20150519
  18. FOLIC ACID. [Concomitant]
     Active Substance: FOLIC ACID
     Indication: PROPHYLAXIS
     Route: 065
     Dates: start: 20101120
  19. OMEPRAZOLE. [Concomitant]
     Active Substance: OMEPRAZOLE
     Indication: PROPHYLAXIS
     Route: 065
     Dates: start: 20150615
  20. ASPIRIN. [Concomitant]
     Active Substance: ASPIRIN
     Indication: PROPHYLAXIS
     Route: 065
     Dates: start: 2015
  21. ACYCLOVIR. [Concomitant]
     Active Substance: ACYCLOVIR
     Indication: PROPHYLAXIS
     Route: 065
     Dates: start: 20150215
  22. HUMALOG [Concomitant]
     Active Substance: INSULIN LISPRO
     Indication: PRODUCT USED FOR UNKNOWN INDICATION
     Route: 065
     Dates: start: 20150419
  23. OMEGA-3 ACIDS [Concomitant]
     Active Substance: OMEGA-3 FATTY ACIDS
     Indication: PROPHYLAXIS
     Route: 065
     Dates: start: 20100920
  24. ALBUTEROL-IPRATROPIUM [Concomitant]
     Indication: PRODUCT USED FOR UNKNOWN INDICATION
     Route: 065
     Dates: start: 20150519, end: 20150519
  25. GLIMEPIRIDE. [Concomitant]
     Active Substance: GLIMEPIRIDE
     Indication: PROPHYLAXIS
     Route: 065
     Dates: start: 20140414
  26. LOSARTAN. [Concomitant]
     Active Substance: LOSARTAN
     Indication: PRODUCT USED FOR UNKNOWN INDICATION
     Route: 065
     Dates: start: 2015
  27. VITAMIN B [Concomitant]
     Active Substance: VITAMIN B
     Indication: PROPHYLAXIS
     Route: 065
     Dates: start: 201505
  28. PLASMA-LYTE [Concomitant]
     Active Substance: ELECTROLYTES NOS
     Indication: PROPHYLAXIS
     Route: 065
     Dates: start: 20150511, end: 20150511
  29. ALBUTEROL. [Concomitant]
     Active Substance: ALBUTEROL
     Indication: PRODUCT USED FOR UNKNOWN INDICATION
     Route: 065
     Dates: start: 201501
  30. PROPOFOL. [Concomitant]
     Active Substance: PROPOFOL
     Indication: PROPHYLAXIS
     Route: 065
     Dates: start: 20150511, end: 20150511

REACTIONS (7)
  - Hypotension [Recovered/Resolved]
  - Chest discomfort [Recovered/Resolved]
  - Infusion related reaction [Recovered/Resolved]
  - Anaphylactic reaction [Recovered/Resolved]
  - Face oedema [Recovered/Resolved]
  - Swollen tongue [Recovered/Resolved]
  - Dyspnoea [Recovered/Resolved]

NARRATIVE: CASE EVENT DATE: 20150519
